FAERS Safety Report 4968791-9 (Version None)
Quarter: 2006Q2

REPORT INFORMATION
  Report Type: 
  Country: None (occurrence: None)
  Receive Date: 20060411
  Receipt Date: 20060406
  Transmission Date: 20061013
  Serious: Yes (Other)
  Sender: FDA-Public Use
  Company Number: US-GLAXOSMITHKLINE-A0600758A

PATIENT
  Sex: Male

DRUGS (2)
  1. PAXIL [Suspect]
     Indication: GENERALISED ANXIETY DISORDER
     Dosage: 20MG PER DAY
  2. VITAMIN AND MINERAL PRENATAL SUPPLEMENT W/ FOLIC ACID CAP [Concomitant]

REACTIONS (11)
  - AUTISM [None]
  - CAESAREAN SECTION [None]
  - DEPRESSION [None]
  - DRUG EXPOSURE DURING PREGNANCY [None]
  - DYSGRAPHIA [None]
  - EATING DISORDER [None]
  - FOETAL DISTRESS SYNDROME [None]
  - LEARNING DISABILITY [None]
  - MECONIUM IN AMNIOTIC FLUID [None]
  - PREGNANCY [None]
  - UMBILICAL CORD AROUND NECK [None]
